FAERS Safety Report 17263717 (Version 1)
Quarter: 2020Q1

REPORT INFORMATION
  Report Type: Spontaneous
  Country: US (occurrence: US)
  Receive Date: 20200113
  Receipt Date: 20200113
  Transmission Date: 20200409
  Serious: No
  Sender: FDA-Public Use
  Company Number: US-IBSA PHARMA-TIR-2019-0816

PATIENT
  Age: 51 Year
  Sex: Female
  Weight: 49.94 kg

DRUGS (3)
  1. CYTOMEL [Concomitant]
     Active Substance: LIOTHYRONINE SODIUM
     Indication: PRODUCT USED FOR UNKNOWN INDICATION
  2. TIROSINT [Suspect]
     Active Substance: LEVOTHYROXINE SODIUM
     Indication: HYPOTHYROIDISM
     Dosage: 50MCG DAILY
     Route: 048
     Dates: start: 20191013
  3. ATIVAN [Concomitant]
     Active Substance: LORAZEPAM
     Indication: PRODUCT USED FOR UNKNOWN INDICATION

REACTIONS (2)
  - Sensation of foreign body [Unknown]
  - Pharyngeal swelling [Unknown]

NARRATIVE: CASE EVENT DATE: 20191015
